FAERS Safety Report 4595129-1 (Version None)
Quarter: 2005Q1

REPORT INFORMATION
  Report Type: 
  Country: None (occurrence: None)
  Receive Date: 20050223
  Receipt Date: 20050211
  Transmission Date: 20050727
  Serious: Yes (Other)
  Sender: FDA-Public Use
  Company Number: HQWYE392217FEB05

PATIENT
  Age: 38 Year

DRUGS (2)
  1. PRIMATENE MIST [Suspect]
     Indication: ASTHMA
     Dosage: 1 PUFF DAILY AS NEEDED, INHALATION
     Route: 055
     Dates: end: 20030101
  2. PRIMATENE MIST [Suspect]
     Indication: ASTHMA
     Dosage: 2 TABLETS TWICE A MONTH AS NEEDED, ORAL
     Route: 048
     Dates: end: 20030101

REACTIONS (3)
  - ASTHMA [None]
  - CONDITION AGGRAVATED [None]
  - PNEUMONIA [None]
